FAERS Safety Report 12361349 (Version 1)
Quarter: 2016Q2

REPORT INFORMATION
  Report Type: Spontaneous
  Country: US (occurrence: US)
  Receive Date: 20160512
  Receipt Date: 20160512
  Transmission Date: 20160815
  Serious: No
  Sender: FDA-Public Use
  Company Number: US-SA-2016SA019230

PATIENT
  Age: 41 Year
  Sex: Female

DRUGS (2)
  1. PRALUENT [Suspect]
     Active Substance: ALIROCUMAB
     Dosage: STRENGTH- 140MG
     Route: 058
  2. ALIROCUMAB PREFILLED PEN [Concomitant]
     Active Substance: ALIROCUMAB

REACTIONS (10)
  - Chills [Unknown]
  - Neuralgia [Unknown]
  - Sinus headache [Unknown]
  - Injection site rash [Unknown]
  - Pain [Unknown]
  - Toothache [Unknown]
  - Feeling abnormal [Unknown]
  - Myalgia [Unknown]
  - Pruritus [Unknown]
  - Flushing [Unknown]

NARRATIVE: CASE EVENT DATE: 20160118
